FAERS Safety Report 6285501-6 (Version None)
Quarter: 2009Q3

REPORT INFORMATION
  Report Type: 
  Country: None (occurrence: None)
  Receive Date: 20090727
  Receipt Date: 20090714
  Transmission Date: 20100115
  Serious: Yes (Hospitalization)
  Sender: FDA-Public Use
  Company Number: PHHY2009TH28707

PATIENT
  Age: 73 Year
  Sex: Male
  Weight: 63.3 kg

DRUGS (2)
  1. ZOLEDRONIC ACID [Suspect]
     Indication: METASTASES TO BONE
     Dosage: 4 MG, UNK
     Route: 042
     Dates: start: 20081101, end: 20090501
  2. PEMETREXED [Concomitant]
     Dosage: UNK
     Dates: start: 20090515

REACTIONS (1)
  - HYPOCALCAEMIA [None]
